FAERS Safety Report 19973674 (Version 1)
Quarter: 2021Q4

REPORT INFORMATION
  Report Type: Report from Study
  Country: AU (occurrence: AU)
  Receive Date: 20211020
  Receipt Date: 20211020
  Transmission Date: 20220303
  Serious: Yes (Other)
  Sender: FDA-Public Use
  Company Number: AU-NOVARTISPH-NVSC2021AU239272

PATIENT
  Sex: Female

DRUGS (1)
  1. ROSUVASTATIN [Suspect]
     Active Substance: ROSUVASTATIN
     Indication: Blood cholesterol increased
     Dosage: 5 MG, QD
     Route: 048

REACTIONS (5)
  - Angina unstable [Unknown]
  - Peripheral embolism [Unknown]
  - Peripheral arterial occlusive disease [Unknown]
  - Blood cholesterol increased [Unknown]
  - Cardiac disorder [Unknown]
